FAERS Safety Report 9808268 (Version 1)
Quarter: 2014Q1

REPORT INFORMATION
  Report Type: Spontaneous
  Country: US (occurrence: None)
  Receive Date: 20140108
  Receipt Date: 20140108
  Transmission Date: 20141002
  Serious: Yes (Death, Other)
  Sender: FDA-Public Use
  Company Number: ADR-2014-00026

PATIENT
  Age: 75 Year
  Sex: Male

DRUGS (2)
  1. BACLOFEN INTRATHECAL [Suspect]
     Indication: CANCER PAIN
     Dosage: UNK
  2. BUPIVACAINE [Suspect]
     Dosage: UNK

REACTIONS (1)
  - Death [None]
